FAERS Safety Report 8027014-7 (Version None)
Quarter: 2012Q1

REPORT INFORMATION
  Report Type: 
  Country: None (occurrence: None)
  Receive Date: 20120106
  Receipt Date: 20111230
  Transmission Date: 20120608
  Serious: Yes (Other)
  Sender: FDA-Public Use
  Company Number: JP-PFIZER INC-2012001133

PATIENT
  Age: 81 Year
  Sex: Female

DRUGS (1)
  1. MIGLITOL [Suspect]
     Dosage: 150 MG, DAILY DOSE
     Route: 048
     Dates: start: 20110609, end: 20110906

REACTIONS (1)
  - LIVER FUNCTION TEST ABNORMAL [None]
